FAERS Safety Report 6744709-3 (Version None)
Quarter: 2010Q2

REPORT INFORMATION
  Report Type: 
  Country: None (occurrence: None)
  Receive Date: 20100526
  Receipt Date: 20100526
  Transmission Date: 20101027
  Serious: Yes (Life-Threatening)
  Sender: FDA-Public Use
  Company Number: None

PATIENT
  Sex: Female
  Weight: 56.3 kg

DRUGS (2)
  1. BEVACIZUMAB LAST DOSE 845MG 03/22/2010 [Suspect]
     Indication: RENAL CELL CARCINOMA
     Dosage: 15 MG/KG Q 21 D IV
     Route: 042
     Dates: start: 20100111, end: 20100322
  2. BORTEZOMIB [Suspect]
     Indication: RENAL CELL CARCINOMA
     Dosage: 1.8 MG/M^2 D1;D8 Q21D IV
     Route: 042
     Dates: start: 20100111, end: 20100329

REACTIONS (3)
  - DIARRHOEA [None]
  - NAUSEA [None]
  - VOMITING [None]
